FAERS Safety Report 8161263-2 (Version None)
Quarter: 2012Q1

REPORT INFORMATION
  Report Type: 
  Country: None (occurrence: None)
  Receive Date: 20120222
  Receipt Date: 20120222
  Transmission Date: 20120608
  Serious: Yes (Other)
  Sender: FDA-Public Use
  Company Number: None

PATIENT
  Age: 60 Year
  Sex: Female
  Weight: 54.4316 kg

DRUGS (1)
  1. RECLAST [Suspect]
     Indication: BONE DENSITY DECREASED
     Dosage: VIA IV AT DR. TODER'S OFFICE ON 1/3/12 (401-421-6011)
     Route: 042
     Dates: start: 20120103

REACTIONS (2)
  - SWELLING [None]
  - PAIN IN JAW [None]
